FAERS Safety Report 15721576 (Version 2)
Quarter: 2020Q2

REPORT INFORMATION
  Report Type: Report from Study
  Country: FR (occurrence: FR)
  Receive Date: 20181214
  Receipt Date: 20200422
  Transmission Date: 20200713
  Serious: Yes (Other)
  Sender: FDA-Public Use
  Company Number: FR-ROCHE-2228520

PATIENT
  Age: 70 Year
  Sex: Male
  Weight: 71 kg

DRUGS (2)
  1. OBINUTUZUMAB. [Suspect]
     Active Substance: OBINUTUZUMAB
     Indication: B-CELL LYMPHOMA
     Dosage: AND ON D1 OF CYCLES 2 TO 6?DATE OF DOSE 1000 MG ADMINISTERED PRIOR TO SAE: 31/JAN/2018
     Route: 042
     Dates: start: 20160201
  2. LENALIDOMIDE [Suspect]
     Active Substance: LENALIDOMIDE
     Indication: B-CELL LYMPHOMA
     Dosage: DATE OF DOSE (10 MG )ADMINISTERED PRIOR TO SAE: 04/JUN/2017
     Route: 048
     Dates: start: 20160125

REACTIONS (1)
  - Basal cell carcinoma [Recovered/Resolved]

NARRATIVE: CASE EVENT DATE: 20180226
